FAERS Safety Report 4489570-5 (Version None)
Quarter: 2004Q4

REPORT INFORMATION
  Report Type: 
  Country: None (occurrence: None)
  Receive Date: 20041026
  Receipt Date: 20041011
  Transmission Date: 20050328
  Serious: Yes (Hospitalization)
  Sender: FDA-Public Use
  Company Number: A02200403042

PATIENT
  Sex: Female

DRUGS (3)
  1. STILNOX (ZOLPIDEM) TABLET 10 MG [Suspect]
     Indication: SLEEP DISORDER
     Route: 064
     Dates: start: 20031101, end: 20040801
  2. LEXOMIL (BROMAZEPAM) TABLET 6 MG [Suspect]
     Indication: DRUG USE FOR UNKNOWN INDICATION
     Route: 064
     Dates: start: 20031101, end: 20040801
  3. PROZAC [Suspect]
     Indication: DEPRESSION
     Route: 064
     Dates: start: 20031101, end: 20040801

REACTIONS (3)
  - APGAR SCORE LOW [None]
  - DRUG EXPOSURE DURING PREGNANCY [None]
  - NEONATAL RESPIRATORY DISTRESS SYNDROME [None]
